FAERS Safety Report 8535439-6 (Version None)
Quarter: 2012Q3

REPORT INFORMATION
  Report Type: 
  Country: None (occurrence: None)
  Receive Date: 20120725
  Receipt Date: 20120711
  Transmission Date: 20120928
  Serious: Yes (Hospitalization)
  Sender: FDA-Public Use
  Company Number: US-009507513-1202USA01970

PATIENT

DRUGS (13)
  1. METHYLPREDNISOLONE [Concomitant]
     Indication: PLANTAR FASCIITIS
  2. FOSAMAX [Suspect]
     Indication: OSTEOPENIA
     Dosage: 35 MG, QW
     Route: 048
     Dates: start: 20000801, end: 20060101
  3. VITA VIM ADULT 50 PLUS [Concomitant]
     Dosage: UNK, QD
     Dates: start: 19800101
  4. FOSAMAX PLUS D [Suspect]
     Indication: OSTEOPENIA
     Dosage: 70 MG, QW
     Route: 048
     Dates: start: 20060201, end: 20100201
  5. FOSAMAX PLUS D [Suspect]
     Dosage: 70 MG, QW
     Dates: start: 20100501, end: 20100501
  6. ASCORBIC ACID [Concomitant]
     Dosage: 500 MG, QD
     Route: 048
     Dates: start: 19980101
  7. LIPITOR [Concomitant]
     Indication: HYPERLIPIDAEMIA
     Dosage: 10 MG, QD
     Route: 048
  8. FOSAMAX [Suspect]
     Dosage: 70 MG, QW
     Route: 048
     Dates: start: 20100201, end: 20100501
  9. LISINOPRIL AND HYDROCHLOROTHIAZIDE [Concomitant]
     Indication: HYPERTENSION
     Dosage: 10-12.5
     Route: 048
  10. PRINZIDE [Concomitant]
     Indication: HYPERTENSION
     Dosage: 20MG-12-5MG
  11. SIMVASTATIN [Concomitant]
     Indication: HYPERLIPIDAEMIA
     Dosage: 20 MG, QD
     Route: 048
  12. VITAMIN E [Concomitant]
     Dosage: 400 IU, QD
     Route: 048
     Dates: start: 19980101
  13. INDOMETHACIN [Concomitant]
     Indication: PLANTAR FASCIITIS

REACTIONS (13)
  - TYPE 2 DIABETES MELLITUS [None]
  - ADVERSE EVENT [None]
  - CONJUNCTIVITIS [None]
  - OSTEOPOROSIS [None]
  - URINARY TRACT INFECTION [None]
  - EAR DISORDER [None]
  - MASTOID DISORDER [None]
  - OSTEOARTHRITIS [None]
  - RASH [None]
  - MUSCLE STRAIN [None]
  - GLAUCOMA [None]
  - FEMUR FRACTURE [None]
  - TINNITUS [None]
